FAERS Safety Report 15190809 (Version 1)
Quarter: 2018Q3

REPORT INFORMATION
  Report Type: Report from Study
  Country: ZA (occurrence: ZA)
  Receive Date: 20180724
  Receipt Date: 20180724
  Transmission Date: 20181010
  Serious: Yes (Death, Other)
  Sender: FDA-Public Use
  Company Number: ZA-REGENERON PHARMACEUTICALS, INC.-2018-29615

PATIENT

DRUGS (2)
  1. EYLEA [Suspect]
     Active Substance: AFLIBERCEPT
     Indication: TYPE 1 DIABETES MELLITUS
     Dosage: 2 DF, ONCE (LAST INJECTION)
     Route: 031
     Dates: start: 20180606, end: 20180606
  2. EYLEA [Suspect]
     Active Substance: AFLIBERCEPT
     Indication: DIABETIC RETINOPATHY
     Dosage: 2 DF, UNK (TOTAL OF 2 INJECTIONS)
     Route: 031
     Dates: start: 20180418, end: 20180606

REACTIONS (2)
  - Diabetic coma [Fatal]
  - Blood glucose increased [Fatal]
